FAERS Safety Report 20519633 (Version 5)
Quarter: 2022Q4

REPORT INFORMATION
  Report Type: Report from Study
  Country: US (occurrence: US)
  Receive Date: 20220225
  Receipt Date: 20221130
  Transmission Date: 20230113
  Serious: Yes (Other)
  Sender: FDA-Public Use
  Company Number: US-GLAXOSMITHKLINE-US2021AMR069268

PATIENT
  Age: 81 Year
  Sex: Female

DRUGS (1)
  1. BELANTAMAB MAFODOTIN [Suspect]
     Active Substance: BELANTAMAB MAFODOTIN
     Indication: Product used for unknown indication
     Dosage: UNK

REACTIONS (5)
  - Corneal epithelium defect [Unknown]
  - Keratopathy [Not Recovered/Not Resolved]
  - Dry eye [Not Recovered/Not Resolved]
  - Foreign body sensation in eyes [Recovered/Resolved]
  - Visual acuity reduced [Recovered/Resolved]

NARRATIVE: CASE EVENT DATE: 20210413
